FAERS Safety Report 10802897 (Version 1)
Quarter: 2015Q1

REPORT INFORMATION
  Report Type: Spontaneous
  Country: SE (occurrence: SE)
  Receive Date: 20150217
  Receipt Date: 20150217
  Transmission Date: 20150721
  Serious: Yes (Hospitalization)
  Sender: FDA-Public Use
  Company Number: US-ASTRAZENECA-2015SE14625

PATIENT
  Age: 3 Month
  Sex: Male

DRUGS (5)
  1. SYNAGIS [Suspect]
     Active Substance: PALIVIZUMAB
     Indication: PROPHYLAXIS
     Dosage: 15 MG/KG OF BODY WEIGHT
     Route: 030
     Dates: start: 20141103, end: 20141103
  2. TENIVAC [Suspect]
     Active Substance: CLOSTRIDIUM TETANI TOXOID ANTIGEN (FORMALDEHYDE INACTIVATED)\CORYNEBACTERIUM DIPHTHERIAE TOXOID ANTIGEN (FORMALDEHYDE INACTIVATED)
     Indication: PRODUCT USED FOR UNKNOWN INDICATION
     Dosage: DIPHTHERIA TOXIOD/ BORDETELLA PERTUSIS/FILAMENTOUS HEMAGGL
     Route: 065
     Dates: start: 20141205, end: 20141205
  3. PREVENAR [Suspect]
     Active Substance: PNEUMOCOCCAL 7-VALENT CONJUGATE VACCINE (DIPHTHERIA CRM197 PROTEIN)
     Indication: PRODUCT USED FOR UNKNOWN INDICATION
     Route: 065
     Dates: start: 20141205, end: 20141205
  4. SYNAGIS [Suspect]
     Active Substance: PALIVIZUMAB
     Indication: PROPHYLAXIS
     Dosage: 15 MG/KG OF BODY WEIGHT
     Route: 030
     Dates: start: 20141204, end: 20141204
  5. SYNAGIS [Suspect]
     Active Substance: PALIVIZUMAB
     Indication: PROPHYLAXIS
     Dosage: 15 MG/KG OF BODY WEIGHT
     Route: 030
     Dates: start: 20150205, end: 20150205

REACTIONS (3)
  - Cough [Unknown]
  - Pallor [Unknown]
  - Dyspnoea [Not Recovered/Not Resolved]

NARRATIVE: CASE EVENT DATE: 20141205
